FAERS Safety Report 25898059 (Version 1)
Quarter: 2025Q4

REPORT INFORMATION
  Report Type: Spontaneous
  Country: US (occurrence: US)
  Receive Date: 20251008
  Receipt Date: 20251008
  Transmission Date: 20260118
  Serious: Yes (Hospitalization)
  Sender: BIOMARIN
  Company Number: US-BIOMARINAP-US-2025-169182

PATIENT
  Sex: Male
  Weight: 8.118 kg

DRUGS (1)
  1. VOXZOGO [Suspect]
     Active Substance: VOSORITIDE
     Indication: Osteochondrodysplasia
     Dosage: 0.24 MILLIGRAM, QD
     Dates: start: 20250518

REACTIONS (3)
  - Constipation [Unknown]
  - Faecaloma [Unknown]
  - Hyperthyroidism [Unknown]
